FAERS Safety Report 18689883 (Version 1)
Quarter: 2020Q4

REPORT INFORMATION
  Report Type: Spontaneous
  Country: RU (occurrence: RU)
  Receive Date: 20201231
  Receipt Date: 20201231
  Transmission Date: 20210114
  Serious: Yes (Hospitalization, Other)
  Sender: FDA-Public Use
  Company Number: RU-AMGEN-RUSSP2020209113

PATIENT
  Age: 62 Year
  Sex: Female

DRUGS (10)
  1. VITAMIN D [COLECALCIFEROL] [Concomitant]
     Active Substance: CHOLECALCIFEROL
     Dosage: UNK
  2. TORASEMIDE [Concomitant]
     Active Substance: TORSEMIDE
     Indication: HYPERTENSION
     Dosage: 5 MILLIGRAM, QD
  3. OMEPRAZOLE. [Concomitant]
     Active Substance: OMEPRAZOLE
     Dosage: UNK
  4. CHOLECALCIFEROL [Concomitant]
     Active Substance: CHOLECALCIFEROL
     Dosage: UNK
  5. LOSARTAN. [Concomitant]
     Active Substance: LOSARTAN
     Dosage: UNK
  6. METIPRED [METHYLPREDNISOLONE SODIUM SUCCINATE] [Concomitant]
     Indication: MYASTHENIC SYNDROME
     Dosage: 100 MILLIGRAM, QD
  7. CALCIUM [Concomitant]
     Active Substance: CALCIUM
     Dosage: UNK
  8. METIPRED [METHYLPREDNISOLONE SODIUM SUCCINATE] [Concomitant]
     Dosage: 16 MILLIGRAM, EVERY OTHER DAY
  9. MEDIROL [Concomitant]
     Dosage: UNK
  10. PROLIA [Suspect]
     Active Substance: DENOSUMAB
     Indication: OSTEOPOROSIS
     Dosage: 60 MILLIGRAM, Q6MO
     Route: 058
     Dates: start: 2016

REACTIONS (9)
  - Renal haemorrhage [Unknown]
  - Chronic kidney disease [Unknown]
  - Suture related complication [Unknown]
  - Spinal compression fracture [Unknown]
  - Cystitis haemorrhagic [Unknown]
  - Type 2 diabetes mellitus [Unknown]
  - Myasthenic syndrome [Unknown]
  - Pyelonephritis [Unknown]
  - Drug ineffective [Unknown]

NARRATIVE: CASE EVENT DATE: 2017
